FAERS Safety Report 17800145 (Version 1)
Quarter: 2020Q2

REPORT INFORMATION
  Report Type: Spontaneous
  Country: GB (occurrence: GB)
  Receive Date: 20200519
  Receipt Date: 20200519
  Transmission Date: 20200714
  Serious: Yes (Hospitalization, Other)
  Sender: FDA-Public Use
  Company Number: GB-BRISTOL-MYERS SQUIBB COMPANY-BMS-2020-038669

PATIENT
  Sex: Male

DRUGS (2)
  1. SUSTIVA [Suspect]
     Active Substance: EFAVIRENZ
     Indication: PRODUCT USED FOR UNKNOWN INDICATION
     Dosage: 600 MILLIGRAM, QD
     Route: 065
  2. EMTRICITABIN TENOFOVIR [Suspect]
     Active Substance: EMTRICITABINE\TENOFOVIR
     Indication: PRODUCT USED FOR UNKNOWN INDICATION
     Dosage: EMTRICITABINE 200 MILLIGRAM AND TENOFOVIR DISOPROXIL FUMARATE AT 245 MILLIGRAM; TIME INTERVAL: 1 DAY
     Route: 065

REACTIONS (1)
  - COVID-19 [Recovered/Resolved]
